FAERS Safety Report 5814147-6 (Version None)
Quarter: 2008Q3

REPORT INFORMATION
  Report Type: 
  Country: None (occurrence: None)
  Receive Date: 20080717
  Receipt Date: 20080709
  Transmission Date: 20090109
  Serious: Yes (Other)
  Sender: FDA-Public Use
  Company Number: JP-PFIZER INC-2008058318

PATIENT
  Age: 45 Year
  Sex: Female

DRUGS (4)
  1. ZOLOFT [Suspect]
     Route: 048
  2. LITHIUM [Suspect]
     Route: 048
  3. BROMAZEPAM [Suspect]
     Route: 048
  4. ZOLPIDEM TARTRATE [Suspect]
     Route: 048

REACTIONS (9)
  - DEPRESSED LEVEL OF CONSCIOUSNESS [None]
  - DIALYSIS [None]
  - DISORIENTATION [None]
  - HEADACHE [None]
  - MULTIPLE DRUG OVERDOSE INTENTIONAL [None]
  - NAUSEA [None]
  - OVERDOSE [None]
  - SUICIDAL IDEATION [None]
  - VOMITING [None]
